FAERS Safety Report 24833019 (Version 1)
Quarter: 2025Q1

REPORT INFORMATION
  Report Type: Spontaneous
  Country: GB (occurrence: GB)
  Receive Date: 20250111
  Receipt Date: 20250111
  Transmission Date: 20250408
  Serious: Yes (Death)
  Sender: CELLTRION
  Company Number: GB-CELLTRION INC.-2024GB033148

PATIENT

DRUGS (1)
  1. INFLIXIMAB [Suspect]
     Active Substance: INFLIXIMAB
     Indication: Colitis ulcerative
     Dosage: 120MG WITH EVERY 2 WEEKS (ONE INJECTION EVERY 2 WEEKS WITHOUT A LOADING DOSE)
     Route: 058
     Dates: start: 202411

REACTIONS (2)
  - Death [Fatal]
  - Intentional product use issue [Unknown]
